FAERS Safety Report 7811213-0 (Version None)
Quarter: 2011Q4

REPORT INFORMATION
  Report Type: 
  Country: None (occurrence: None)
  Receive Date: 20111013
  Receipt Date: 20110929
  Transmission Date: 20120403
  Serious: Yes (Death, Hospitalization)
  Sender: FDA-Public Use
  Company Number: RU-GENZYME-POMP-1001814

PATIENT
  Sex: Male
  Weight: 7 kg

DRUGS (2)
  1. ANTIBIOTICS [Concomitant]
     Indication: PRODUCT USED FOR UNKNOWN INDICATION
     Dosage: UNK UNK, UNK
     Route: 065
     Dates: start: 20110901, end: 20110901
  2. MYOZYME [Suspect]
     Indication: GLYCOGEN STORAGE DISEASE TYPE II
     Dosage: 21 MG/KG, Q2W
     Route: 042
     Dates: start: 20110819, end: 20110919

REACTIONS (4)
  - PULMONARY HYPERTENSION [None]
  - CARDIOPULMONARY FAILURE [None]
  - DISEASE PROGRESSION [None]
  - CARDIOVASCULAR DISORDER [None]
